FAERS Safety Report 4721951-4 (Version None)
Quarter: 2005Q3

REPORT INFORMATION
  Report Type: 
  Country: None (occurrence: None)
  Receive Date: 20050722
  Receipt Date: 20050715
  Transmission Date: 20060218
  Serious: Yes (Other)
  Sender: FDA-Public Use
  Company Number: US-BRISTOL-MYERS SQUIBB COMPANY-13039714

PATIENT
  Age: 85 Year
  Sex: Male

DRUGS (3)
  1. GATIFLOXACIN [Suspect]
     Dosage: EYEDROPS
     Route: 047
  2. PREDNISOLONE [Concomitant]
     Dosage: EYEDROPS
  3. PREDNISOLONE [Concomitant]
     Indication: GLOMERULONEPHRITIS
     Route: 048

REACTIONS (1)
  - CORNEAL DEPOSITS [None]
